FAERS Safety Report 6599486-6 (Version None)
Quarter: 2010Q1

REPORT INFORMATION
  Report Type: 
  Country: None (occurrence: None)
  Receive Date: 20100212
  Receipt Date: 20090916
  Transmission Date: 20100710
  Serious: No
  Sender: FDA-Public Use
  Company Number: 2009-00625

PATIENT
  Age: 28 Year
  Sex: Female
  Weight: 99.7913 kg

DRUGS (1)
  1. ZICAM EXTREME CONGESTION NASAL GEL [Suspect]
     Indication: NASOPHARYNGITIS
     Dosage: BID - 10-11 DAYS OF USE/3 WKS 0AGO- 1 1/2 WKS

REACTIONS (1)
  - ANOSMIA [None]
